FAERS Safety Report 22608863 (Version 1)
Quarter: 2023Q2

REPORT INFORMATION
  Report Type: Spontaneous
  Country: US (occurrence: US)
  Receive Date: 20230616
  Receipt Date: 20230616
  Transmission Date: 20230722
  Serious: No
  Sender: FDA-Public Use
  Company Number: US-SA-SAC20230615000071

PATIENT
  Sex: Female
  Weight: 64.41 kg

DRUGS (30)
  1. DUPIXENT [Suspect]
     Active Substance: DUPILUMAB
     Indication: Asthma
     Dosage: 300 MG, QOW
     Route: 058
  2. CALCIUM [Concomitant]
     Active Substance: CALCIUM
  3. DOXYCYCLINE HYCLATE [Concomitant]
     Active Substance: DOXYCYCLINE HYCLATE
  4. EMGALITY [Concomitant]
     Active Substance: GALCANEZUMAB-GNLM
  5. FIORICET [Concomitant]
     Active Substance: ACETAMINOPHEN\BUTALBITAL\CAFFEINE
     Dosage: 50-300-40
  6. NALTREXONE HYDROCHLORIDE [Concomitant]
     Active Substance: NALTREXONE HYDROCHLORIDE
  7. FIBER [Concomitant]
  8. TOPAMAX [Concomitant]
     Active Substance: TOPIRAMATE
  9. AMITRIPTYLINE HYDROCHLORIDE [Concomitant]
     Active Substance: AMITRIPTYLINE HYDROCHLORIDE
  10. DICYCLOMINE HYDROCHLORIDE [Concomitant]
     Active Substance: DICYCLOMINE HYDROCHLORIDE
  11. INCRUSE ELLIPTA [Concomitant]
     Active Substance: UMECLIDINIUM BROMIDE
  12. DICLOFENAC SODIUM [Concomitant]
     Active Substance: DICLOFENAC SODIUM
  13. GENTAMICIN SULFATE [Concomitant]
     Active Substance: GENTAMICIN SULFATE
  14. XOLAIR [Concomitant]
     Active Substance: OMALIZUMAB
  15. METOPROLOL TARTRATE [Concomitant]
     Active Substance: METOPROLOL TARTRATE
  16. CETIRIZINE HCL [Concomitant]
     Active Substance: CETIRIZINE HYDROCHLORIDE
  17. SYMBICORT [Concomitant]
     Active Substance: BUDESONIDE\FORMOTEROL FUMARATE DIHYDRATE
  18. ATORVASTATIN CALCIUM [Concomitant]
     Active Substance: ATORVASTATIN CALCIUM
  19. IRON [Concomitant]
     Active Substance: IRON
  20. PROAIR HFA [Concomitant]
     Active Substance: ALBUTEROL SULFATE
  21. DEPO-PROVERA [Concomitant]
     Active Substance: MEDROXYPROGESTERONE ACETATE
  22. FERROUS SULFATE [Concomitant]
     Active Substance: FERROUS SULFATE
  23. VITAMIN B12 [Concomitant]
     Active Substance: CYANOCOBALAMIN
  24. VITAMINS [Concomitant]
     Active Substance: VITAMINS
  25. OMEPRAZOLE [Concomitant]
     Active Substance: OMEPRAZOLE
  26. NASACORT [Concomitant]
     Active Substance: TRIAMCINOLONE ACETONIDE
  27. ZYRTEC [Concomitant]
     Active Substance: CETIRIZINE HYDROCHLORIDE
  28. SINGULAIR [Concomitant]
     Active Substance: MONTELUKAST SODIUM
  29. GABAPENTIN [Concomitant]
     Active Substance: GABAPENTIN
  30. CYMBALTA [Concomitant]
     Active Substance: DULOXETINE HYDROCHLORIDE

REACTIONS (1)
  - Illness [Unknown]
